FAERS Safety Report 21787705 (Version 1)
Quarter: 2022Q4

REPORT INFORMATION
  Report Type: Report from Study
  Country: US (occurrence: US)
  Receive Date: 20221228
  Receipt Date: 20221228
  Transmission Date: 20230112
  Serious: No
  Sender: FDA-Public Use
  Company Number: US-ABBVIE-4251265

PATIENT
  Sex: Female

DRUGS (1)
  1. VENCLEXTA [Suspect]
     Active Substance: VENETOCLAX
     Indication: Plasma cell myeloma
     Dosage: EVENT START DATE AND STOP DATE WAS UNKNOWN IN THE YEAR 2022
     Route: 048
     Dates: start: 20220405

REACTIONS (1)
  - Rash pruritic [Recovering/Resolving]
